FAERS Safety Report 7397269-0 (Version None)
Quarter: 2011Q2

REPORT INFORMATION
  Report Type: 
  Country: None (occurrence: None)
  Receive Date: 20110406
  Receipt Date: 20110324
  Transmission Date: 20111010
  Serious: Yes (Other)
  Sender: FDA-Public Use
  Company Number: US-JNJFOC-20110310803

PATIENT
  Sex: Female
  Weight: 63.96 kg

DRUGS (10)
  1. CYMBALTA [Concomitant]
     Indication: PAIN
     Route: 048
  2. AMBIEN [Concomitant]
     Indication: SLEEP DISORDER
     Dosage: EVERY NIGHT
     Route: 048
  3. METHOTREXATE [Suspect]
     Dosage: 2.5 MG, 4 TABLETS
     Route: 048
  4. HYDROCODONE [Concomitant]
     Indication: BACK PAIN
     Dosage: AS NEEDED
     Route: 048
  5. SOMA [Concomitant]
     Indication: MUSCLE SPASMS
     Route: 048
  6. FENTANYL [Suspect]
     Indication: ARTHRALGIA
     Route: 062
  7. SIMPONI [Concomitant]
     Indication: RHEUMATOID ARTHRITIS
     Route: 058
  8. METHOTREXATE [Suspect]
     Indication: RHEUMATOID ARTHRITIS
     Dosage: 2.5 MG, 6 TABLETS ONCE A DAY ONCE A WEEK
     Route: 048
  9. GABAPENTIN [Concomitant]
     Indication: NERVE INJURY
     Dosage: 300 MG, 2 CAPSULES
     Route: 048
  10. CYMBALTA [Concomitant]
     Indication: DEPRESSION
     Route: 048

REACTIONS (2)
  - RHEUMATOID ARTHRITIS [None]
  - NAUSEA [None]
